FAERS Safety Report 13603963 (Version 10)
Quarter: 2017Q4

REPORT INFORMATION
  Report Type: Spontaneous
  Country: GB (occurrence: GB)
  Receive Date: 20170602
  Receipt Date: 20171115
  Transmission Date: 20180320
  Serious: Yes (Hospitalization, Other)
  Sender: FDA-Public Use
  Company Number: GB-SUN PHARMACEUTICAL INDUSTRIES LTD-2017RR-141591

PATIENT
  Age: 16 Year
  Sex: Female

DRUGS (12)
  1. LYRICA [Suspect]
     Active Substance: PREGABALIN
     Dosage: 100 MG, BID
     Route: 048
     Dates: start: 20170410
  2. LYRICA [Suspect]
     Active Substance: PREGABALIN
     Dosage: 150 MG, BID, DOSAGE FORM: UNSPECIFIED
     Route: 048
     Dates: start: 2017
  3. LYRICA [Suspect]
     Active Substance: PREGABALIN
     Dosage: 200 MG, BID, DOSAGE FORM: UNSPECIFIED
     Route: 048
     Dates: start: 201609, end: 20170410
  4. RISPERIDONE. [Suspect]
     Active Substance: RISPERIDONE
     Indication: AFFECTIVE DISORDER
     Dosage: 7 MG, DAILY, UNSPECIFIED, STOPPED IN FEB OR MAR-2017
     Route: 048
     Dates: start: 201609, end: 2017
  5. RISPERIDONE. [Suspect]
     Active Substance: RISPERIDONE
     Indication: AFFECTIVE DISORDER
     Dosage: 7 MG, DAILY, DOSAGE FORM: UNSPECIFIED
     Route: 048
     Dates: start: 201608
  6. LYRICA [Suspect]
     Active Substance: PREGABALIN
     Indication: POST-TRAUMATIC STRESS DISORDER
     Dosage: 200 MG, BID,  DOSAGE FORM: UNSPECIFIED
     Route: 048
     Dates: start: 201609, end: 20170410
  7. MELATONIN [Concomitant]
     Active Substance: MELATONIN
     Indication: INSOMNIA
     Dosage: 4 MG, QD
     Route: 048
     Dates: start: 201609, end: 201705
  8. LYRICA [Suspect]
     Active Substance: PREGABALIN
     Dosage: 150 MG, BID
     Route: 048
     Dates: start: 2017
  9. CLONAZEPAM. [Concomitant]
     Active Substance: CLONAZEPAM
     Indication: AGITATION
     Dosage: 0.5 MG, QD, DOSAGE FORM: UNSPECIFIED
     Route: 048
     Dates: start: 20170516
  10. LYRICA [Suspect]
     Active Substance: PREGABALIN
     Indication: POST-TRAUMATIC STRESS DISORDER
     Dosage: 100 MG, BID
     Route: 048
     Dates: start: 20170410
  11. LYRICA [Suspect]
     Active Substance: PREGABALIN
     Dosage: 180 MG, BID, DOSAGE FORM: UNSPECIFIED
     Route: 048
     Dates: start: 20170410, end: 2017
  12. CLONAZEPAM. [Concomitant]
     Active Substance: CLONAZEPAM
     Indication: AGITATION
     Dosage: 1 MG, BID
     Route: 048
     Dates: start: 20170508, end: 20170516

REACTIONS (6)
  - Joint stiffness [Recovered/Resolved]
  - Condition aggravated [Not Recovered/Not Resolved]
  - Product use issue [Unknown]
  - Galactorrhoea [Recovered/Resolved]
  - Hyperprolactinaemia [Recovered/Resolved]
  - Anxiety [Not Recovered/Not Resolved]

NARRATIVE: CASE EVENT DATE: 201609
